FAERS Safety Report 8143530-1 (Version None)
Quarter: 2012Q1

REPORT INFORMATION
  Report Type: 
  Country: None (occurrence: None)
  Receive Date: 20120217
  Receipt Date: 20111228
  Transmission Date: 20120608
  Serious: Yes (Death)
  Sender: FDA-Public Use
  Company Number: US-PFIZER INC-2011308772

PATIENT
  Age: 19 Year
  Sex: Female

DRUGS (8)
  1. ACETYLSALICYLIC ACID SRT [Suspect]
  2. ACETAMINOPHEN AND HYDROCODONE BITARTRATE [Suspect]
     Dosage: UNK
  3. AMLODIPINE BESYLATE [Suspect]
     Route: 048
  4. DIPHENHYDRAMINE HCL [Suspect]
     Dosage: UNK
  5. ATENOLOL [Suspect]
     Route: 048
  6. DIAZEPAM [Suspect]
     Route: 048
  7. HYDROXYZINE PAMOATE [Suspect]
     Route: 048
  8. TRIAMTERENE AND HYDROCHLOROTHIAZIDE [Suspect]
     Dosage: UNK

REACTIONS (3)
  - COMPLETED SUICIDE [None]
  - RESPIRATORY ARREST [None]
  - CARDIAC ARREST [None]
